FAERS Safety Report 9844306 (Version 1)
Quarter: 2014Q1

REPORT INFORMATION
  Report Type: Spontaneous
  Country: GB (occurrence: None)
  Receive Date: 20140123
  Receipt Date: 20140123
  Transmission Date: 20141002
  Serious: Yes (Hospitalization, Other)
  Sender: FDA-Public Use
  Company Number: AUR-APL-2014-00474

PATIENT
  Age: 61 Year
  Sex: Female
  Weight: 76.2 kg

DRUGS (5)
  1. ALENDRONIC ACID [Suspect]
     Indication: OSTEOPOROSIS
     Dosage: 10 MG ( 70 MG 1 IN 1 WEEK
     Route: 048
     Dates: start: 20130204, end: 20130311
  2. BORON (BORON) [Concomitant]
  3. CALCICHEW (CALCIUM CARBONATE) [Concomitant]
  4. FLAXSEED OIL (LINUM USITATISSIMUM SEED OIL) [Concomitant]
  5. VITAMIN E (TOCOPEROL) [Concomitant]

REACTIONS (4)
  - Headache [None]
  - Myalgia [None]
  - Neck pain [None]
  - Muscle spasms [None]
